FAERS Safety Report 5035945-5 (Version None)
Quarter: 2006Q2

REPORT INFORMATION
  Report Type: 
  Country: None (occurrence: None)
  Receive Date: 20060526
  Receipt Date: 20060403
  Transmission Date: 20061013
  Serious: Yes (Hospitalization, Other)
  Sender: FDA-Public Use
  Company Number: WAES 0604USA00179

PATIENT
  Age: 59 Year
  Sex: Female
  Weight: 101.1521 kg

DRUGS (13)
  1. VYTORIN [Suspect]
     Indication: BLOOD CHOLESTEROL INCREASED
     Dosage: 10-80 MG/DAILY/PO
     Route: 048
     Dates: start: 20060101, end: 20060324
  2. GLIPIZIDE [Concomitant]
  3. HYDRODIURIL [Concomitant]
  4. NORVASC [Concomitant]
  5. PLAVIX [Concomitant]
  6. TOPROL-XL [Concomitant]
  7. ACETAMINOPHEN [Concomitant]
  8. ASPIRIN [Concomitant]
  9. BUPROPION HYDROCHLORIDE [Concomitant]
  10. FOLIC ACID [Concomitant]
  11. ISOSORBIDE [Concomitant]
  12. LISINOPRIL [Concomitant]
  13. NITROGLYCERIN [Concomitant]

REACTIONS (1)
  - RHABDOMYOLYSIS [None]
